FAERS Safety Report 10992319 (Version 2)
Quarter: 2015Q2

REPORT INFORMATION
  Report Type: Spontaneous
  Country: NO (occurrence: NO)
  Receive Date: 20150406
  Receipt Date: 20150611
  Transmission Date: 20150821
  Serious: Yes (Hospitalization, Other)
  Sender: FDA-Public Use
  Company Number: PHHY2015NO018946

PATIENT
  Age: 31 Year
  Sex: Female

DRUGS (3)
  1. LEPONEX [Suspect]
     Active Substance: CLOZAPINE
     Indication: SCHIZOPHRENIA
     Dosage: 350 MG (100 MG IN MORNING AND 250 MG IN EVENING)
     Route: 048
     Dates: start: 200411, end: 200507
  2. ZELDOX [Concomitant]
     Active Substance: ZIPRASIDONE
     Dosage: 40 MG, QD IN MAY
     Route: 065
  3. ZELDOX [Concomitant]
     Active Substance: ZIPRASIDONE
     Indication: PRODUCT USED FOR UNKNOWN INDICATION
     Dosage: 120 MG, QD IN JAN
     Route: 065

REACTIONS (6)
  - Decreased appetite [Recovered/Resolved]
  - Sedation [Unknown]
  - Dizziness [Unknown]
  - Neutropenia [Recovered/Resolved]
  - Malaise [Unknown]
  - White blood cell count decreased [Recovered/Resolved]

NARRATIVE: CASE EVENT DATE: 200507
